FAERS Safety Report 7285590-6 (Version None)
Quarter: 2011Q1

REPORT INFORMATION
  Report Type: 
  Country: None (occurrence: None)
  Receive Date: 20110210
  Receipt Date: 20110207
  Transmission Date: 20110831
  Serious: Yes (Hospitalization)
  Sender: FDA-Public Use
  Company Number: A0779250A

PATIENT
  Age: 60 Year
  Sex: Male
  Weight: 120.5 kg

DRUGS (12)
  1. AVANDIA [Suspect]
     Indication: DIABETES MELLITUS
     Dosage: 4MG TWICE PER DAY
     Route: 048
     Dates: start: 20050101, end: 20070101
  2. AMBIEN [Concomitant]
  3. GLUCOTROL [Concomitant]
  4. BYETTA [Concomitant]
  5. EFFEXOR [Concomitant]
  6. CYMBALTA [Concomitant]
  7. FLOMAX [Concomitant]
  8. COREG [Concomitant]
  9. MULTIVITAMIN [Concomitant]
  10. PLAVIX [Concomitant]
  11. METFORMIN [Concomitant]
  12. LANTUS [Concomitant]

REACTIONS (3)
  - ARRHYTHMIA [None]
  - CARDIAC FAILURE CONGESTIVE [None]
  - PAIN [None]
